FAERS Safety Report 13148138 (Version 2)
Quarter: 2017Q1

REPORT INFORMATION
  Report Type: Spontaneous
  Country: HU (occurrence: HU)
  Receive Date: 20170125
  Receipt Date: 20170201
  Transmission Date: 20170428
  Serious: Yes (Hospitalization)
  Sender: FDA-Public Use
  Company Number: PHHY2017HU004810

PATIENT
  Age: 39 Year
  Sex: Male
  Weight: 115 kg

DRUGS (2)
  1. TAFINLAR [Concomitant]
     Active Substance: DABRAFENIB MESYLATE
     Indication: METASTATIC MALIGNANT MELANOMA
     Dosage: 150 MG, BID
     Route: 048
     Dates: start: 20151105
  2. MEKINIST [Suspect]
     Active Substance: TRAMETINIB DIMETHYL SULFOXIDE
     Indication: METASTATIC MALIGNANT MELANOMA
     Dosage: 2 MG, QD
     Route: 048
     Dates: start: 20160804

REACTIONS (3)
  - Visual impairment [Recovering/Resolving]
  - Retinitis [Recovering/Resolving]
  - Detachment of retinal pigment epithelium [Recovering/Resolving]

NARRATIVE: CASE EVENT DATE: 20170102
